FAERS Safety Report 24210509 (Version 1)
Quarter: 2024Q3

REPORT INFORMATION
  Report Type: Spontaneous
  Country: US (occurrence: None)
  Receive Date: 20240813
  Receipt Date: 20240813
  Transmission Date: 20241017
  Serious: No
  Sender: Public
  Company Number: None

PATIENT
  Age: 70 Year
  Sex: Male
  Weight: 63.5 kg

DRUGS (8)
  1. CLONAZEPAM [Suspect]
     Active Substance: CLONAZEPAM
     Indication: Anxiety
     Dosage: OTHER QUANTITY : 180 PILLS 90 DAYS ;?FREQUENCY : TWICE A DAY;?
     Route: 049
     Dates: start: 20240310, end: 20240523
  2. COENZYME Q10 [Concomitant]
     Active Substance: DIETARY SUPPLEMENT\UBIDECARENONE
  3. VITAMIN D3 [Concomitant]
     Active Substance: CHOLECALCIFEROL
  4. KRILL OIL [Concomitant]
     Active Substance: DIETARY SUPPLEMENT\KRILL OIL
  5. Saw Palmetto Berries [Concomitant]
  6. MAGNESIUM [Concomitant]
  7. L-CITRULLINE [Concomitant]
  8. SOMNAPURE [Concomitant]

REACTIONS (8)
  - Headache [None]
  - Head discomfort [None]
  - Seizure [None]
  - Expired product administered [None]
  - Drug ineffective [None]
  - Encephalitis [None]
  - Photophobia [None]
  - Noninfective encephalitis [None]

NARRATIVE: CASE EVENT DATE: 20240310
